FAERS Safety Report 6202872-7 (Version None)
Quarter: 2009Q2

REPORT INFORMATION
  Report Type: 
  Country: None (occurrence: None)
  Receive Date: 20090520
  Receipt Date: 20090507
  Transmission Date: 20091009
  Serious: Yes (Other)
  Sender: FDA-Public Use
  Company Number: 000819

PATIENT

DRUGS (3)
  1. VIMPAT [Suspect]
     Dosage: (TITRATED UP TO 400 MG OVER 2 WEEKS)
  2. KEPPRA [Concomitant]
  3. TOPIRAMATE [Concomitant]

REACTIONS (3)
  - CONDITION AGGRAVATED [None]
  - CONVULSION [None]
  - PRODUCT QUALITY ISSUE [None]
